FAERS Safety Report 5693060-1 (Version None)
Quarter: 2008Q2

REPORT INFORMATION
  Report Type: 
  Country: None (occurrence: None)
  Receive Date: 20080402
  Receipt Date: 20080402
  Transmission Date: 20081010
  Serious: Yes (Other)
  Sender: FDA-Public Use
  Company Number: None

PATIENT
  Age: 54 Year
  Sex: Male
  Weight: 81.6475 kg

DRUGS (2)
  1. ZEMAIRA [Suspect]
     Indication: EMPHYSEMA
     Dosage: 60 MG/KG 85 KG WEEKLY IV
     Route: 042
     Dates: start: 20080306
  2. ZEMAIRA [Suspect]
     Indication: EMPHYSEMA
     Dosage: 60 MG/KG 85 KG WEEKLY IV
     Route: 042
     Dates: start: 20080313

REACTIONS (1)
  - URTICARIA [None]
